FAERS Safety Report 12411900 (Version 1)
Quarter: 2016Q2

REPORT INFORMATION
  Report Type: Spontaneous
  Country: US (occurrence: None)
  Receive Date: 20160526
  Receipt Date: 20160526
  Transmission Date: 20160815
  Serious: Yes (Death)
  Sender: FDA-Public Use
  Company Number: None

PATIENT
  Age: 23 Year
  Sex: Male

DRUGS (1)
  1. BOTOX [Suspect]
     Active Substance: ONABOTULINUMTOXINA
     Indication: TENSION HEADACHE
     Dosage: 200U EVERY 3 MONTHS IM
     Route: 030
     Dates: start: 20160216, end: 20160521

REACTIONS (1)
  - Death [None]

NARRATIVE: CASE EVENT DATE: 20160521
